FAERS Safety Report 20826055 (Version 1)
Quarter: 2022Q2

REPORT INFORMATION
  Report Type: Spontaneous
  Country: US (occurrence: None)
  Receive Date: 20220512
  Receipt Date: 20220512
  Transmission Date: 20220720
  Serious: Yes (Hospitalization)
  Sender: FDA-Public Use
  Company Number: None

PATIENT
  Age: 75 Year
  Sex: Female

DRUGS (1)
  1. CAPECITABINE [Suspect]
     Active Substance: CAPECITABINE
     Dosage: 500MG TABS; 2 TABS BID ORAL?
     Route: 048
     Dates: start: 202201, end: 202204

REACTIONS (8)
  - General physical health deterioration [None]
  - Decreased appetite [None]
  - Oral pain [None]
  - Nausea [None]
  - Fatigue [None]
  - Gait disturbance [None]
  - Palmar-plantar erythrodysaesthesia syndrome [None]
  - Insomnia [None]

NARRATIVE: CASE EVENT DATE: 20220417
